FAERS Safety Report 16983418 (Version 2)
Quarter: 2019Q4

REPORT INFORMATION
  Report Type: Report from Study
  Country: US (occurrence: US)
  Receive Date: 20191101
  Receipt Date: 20191104
  Transmission Date: 20200122
  Serious: Yes (Other)
  Sender: FDA-Public Use
  Company Number: US-JNJFOC-20191038255

PATIENT
  Age: 69 Year
  Sex: Female
  Weight: 50 kg

DRUGS (36)
  1. SIMPONI ARIA [Suspect]
     Active Substance: GOLIMUMAB
     Dosage: 2MG/KG
     Route: 042
     Dates: start: 20180216, end: 20180216
  2. ZANAFLEX [Concomitant]
     Active Substance: TIZANIDINE HYDROCHLORIDE
     Indication: FIBROMYALGIA
     Route: 048
     Dates: start: 20150821
  3. PREDNISONE. [Concomitant]
     Active Substance: PREDNISONE
     Indication: RHEUMATOID ARTHRITIS
     Route: 048
     Dates: start: 20170915, end: 20170922
  4. SIMPONI ARIA [Suspect]
     Active Substance: GOLIMUMAB
     Dosage: 2MG/KG
     Route: 042
     Dates: start: 20171013, end: 20171013
  5. LIDODERM [Concomitant]
     Active Substance: LIDOCAINE
     Indication: FIBROMYALGIA
     Route: 062
     Dates: start: 2010
  6. FLUOROURACIL. [Concomitant]
     Active Substance: FLUOROURACIL
     Indication: PROPHYLAXIS
     Route: 061
     Dates: start: 20170303
  7. SIMPONI ARIA [Suspect]
     Active Substance: GOLIMUMAB
     Dosage: 2MG/KG
     Route: 042
     Dates: start: 20180719, end: 20180719
  8. SIMPONI ARIA [Suspect]
     Active Substance: GOLIMUMAB
     Dosage: 2MG/KG
     Route: 042
     Dates: start: 20190426, end: 20190426
  9. HYDROCHLOROTHIAZIDE. [Concomitant]
     Active Substance: HYDROCHLOROTHIAZIDE
     Route: 048
     Dates: start: 20170502
  10. ARAVA [Concomitant]
     Active Substance: LEFLUNOMIDE
     Indication: RHEUMATOID ARTHRITIS
     Route: 048
     Dates: start: 20160915
  11. SIMPONI ARIA [Suspect]
     Active Substance: GOLIMUMAB
     Dosage: 2MG/KG
     Route: 042
     Dates: start: 20181109, end: 20181109
  12. SIMPONI ARIA [Suspect]
     Active Substance: GOLIMUMAB
     Dosage: 2MG/KG
     Route: 042
     Dates: start: 20190621, end: 20190621
  13. LOVASTATIN. [Concomitant]
     Active Substance: LOVASTATIN
     Indication: BLOOD CHOLESTEROL INCREASED
     Route: 048
     Dates: start: 2006
  14. NEURONTIN [Concomitant]
     Active Substance: GABAPENTIN
     Indication: FIBROMYALGIA
     Route: 048
     Dates: start: 20160916
  15. SIMPONI ARIA [Suspect]
     Active Substance: GOLIMUMAB
     Indication: RHEUMATOID ARTHRITIS
     Dosage: 2MG/KG
     Route: 042
     Dates: start: 20161014, end: 20161014
  16. SIMPONI ARIA [Suspect]
     Active Substance: GOLIMUMAB
     Dosage: 2MG/KG
     Route: 042
     Dates: start: 20170106, end: 20170106
  17. SIMPONI ARIA [Suspect]
     Active Substance: GOLIMUMAB
     Dosage: 2MG/KG
     Route: 042
     Dates: start: 20170303, end: 20170303
  18. SIMPONI ARIA [Suspect]
     Active Substance: GOLIMUMAB
     Dosage: 2MG/KG
     Route: 042
     Dates: start: 20170428, end: 20170428
  19. SIMPONI ARIA [Suspect]
     Active Substance: GOLIMUMAB
     Dosage: 2MG/KG
     Route: 042
     Dates: start: 20170623, end: 20170623
  20. SIMPONI ARIA [Suspect]
     Active Substance: GOLIMUMAB
     Dosage: 2MG/KG
     Route: 042
     Dates: start: 20171208, end: 20171208
  21. SIMPONI ARIA [Suspect]
     Active Substance: GOLIMUMAB
     Dosage: 2MG/KG
     Route: 042
     Dates: start: 20190301, end: 20190301
  22. PERCOCET [Concomitant]
     Active Substance: ACETAMINOPHEN\OXYCODONE HYDROCHLORIDE
     Indication: RHEUMATOID ARTHRITIS
     Dosage: 5-325 MILLIGRAM
     Route: 048
     Dates: start: 20130225
  23. PROLIA [Concomitant]
     Active Substance: DENOSUMAB
     Indication: OSTEOPOROSIS
     Route: 058
     Dates: start: 20150605
  24. TRIAMTERENE. [Concomitant]
     Active Substance: TRIAMTERENE
     Indication: HYPERTENSION
     Route: 048
     Dates: start: 20080707
  25. PREDNISONE. [Concomitant]
     Active Substance: PREDNISONE
     Route: 048
     Dates: start: 20160108
  26. SIMPONI ARIA [Suspect]
     Active Substance: GOLIMUMAB
     Dosage: 2MG/KG
     Route: 042
     Dates: start: 20190104, end: 20190104
  27. CALCIUM W/COLECALCIFEROL [Concomitant]
     Active Substance: CALCIUM\CHOLECALCIFEROL
     Route: 048
     Dates: start: 2000
  28. VITAMIN D                          /00107901/ [Concomitant]
     Active Substance: ERGOCALCIFEROL
     Route: 048
     Dates: start: 2000
  29. HYDROCHLOROTHIAZIDE. [Concomitant]
     Active Substance: HYDROCHLOROTHIAZIDE
     Indication: HYPERTENSION
     Route: 048
     Dates: start: 20080707, end: 20170501
  30. PREDNISONE. [Concomitant]
     Active Substance: PREDNISONE
     Route: 048
     Dates: start: 20171008
  31. SIMPONI ARIA [Suspect]
     Active Substance: GOLIMUMAB
     Dosage: 2MG/KG
     Route: 042
     Dates: start: 20170818, end: 20170818
  32. SIMPONI ARIA [Suspect]
     Active Substance: GOLIMUMAB
     Dosage: 2MG/KG
     Route: 042
     Dates: start: 20180330, end: 20180330
  33. PREDNISONE. [Concomitant]
     Active Substance: PREDNISONE
     Route: 048
     Dates: start: 20170923, end: 20171007
  34. SIMPONI ARIA [Suspect]
     Active Substance: GOLIMUMAB
     Dosage: 2MG/KG
     Route: 042
     Dates: start: 20161111, end: 20161111
  35. SIMPONI ARIA [Suspect]
     Active Substance: GOLIMUMAB
     Dosage: 2MG/KG
     Route: 042
     Dates: start: 20180914, end: 20180914
  36. WELLBUTRIN [Concomitant]
     Active Substance: BUPROPION HYDROCHLORIDE
     Indication: FIBROMYALGIA
     Route: 048
     Dates: start: 20150824

REACTIONS (1)
  - Malignant melanoma [Recovered/Resolved]

NARRATIVE: CASE EVENT DATE: 20171128
